FAERS Safety Report 8471204-6 (Version None)
Quarter: 2012Q2

REPORT INFORMATION
  Report Type: 
  Country: None (occurrence: None)
  Receive Date: 20120627
  Receipt Date: 20120622
  Transmission Date: 20120825
  Serious: Yes (Hospitalization)
  Sender: FDA-Public Use
  Company Number: PE-PFIZER INC-2012124819

PATIENT
  Age: 67 Year
  Sex: Female

DRUGS (5)
  1. PENTOXIFYLLINE [Concomitant]
  2. INSULIN [Concomitant]
  3. T4 [Concomitant]
  4. LYRICA [Suspect]
     Indication: FIBROMYALGIA
     Dosage: 150 MG, 2X/DAY
     Route: 048
     Dates: start: 20090101
  5. FUROSEMIDE [Concomitant]

REACTIONS (1)
  - CHOLELITHIASIS [None]
